FAERS Safety Report 9838233 (Version 2)
Quarter: 2014Q1

REPORT INFORMATION
  Report Type: Spontaneous
  Country: US (occurrence: US)
  Receive Date: 20140123
  Receipt Date: 20140203
  Transmission Date: 20141002
  Serious: No
  Sender: FDA-Public Use
  Company Number: US-GILEAD-2014-0092384

PATIENT
  Sex: Male

DRUGS (4)
  1. SOVALDI [Suspect]
     Indication: CHRONIC HEPATITIS C
     Dosage: 800 MG, QD
     Route: 048
  2. SOVALDI [Suspect]
     Dosage: 400 MG, QD
     Route: 048
  3. PEGASYS [Concomitant]
     Indication: CHRONIC HEPATITIS C
  4. RIBAVIRIN [Concomitant]

REACTIONS (1)
  - Overdose [Recovered/Resolved]
